FAERS Safety Report 4625461-4 (Version None)
Quarter: 2005Q2

REPORT INFORMATION
  Report Type: 
  Country: None (occurrence: None)
  Receive Date: 20050401
  Receipt Date: 20041029
  Transmission Date: 20051028
  Serious: Yes (Hospitalization)
  Sender: FDA-Public Use
  Company Number: CA-BOEHRINGER INGELHEIM PHARMACEUTICALS, INC.-2004-CN-00387CN

PATIENT
  Age: 18 Month
  Sex: Female
  Weight: 11.8 kg

DRUGS (1)
  1. MIRAPEX [Suspect]
     Route: 048

REACTIONS (4)
  - ACCIDENTAL POISONING [None]
  - COMA [None]
  - HYPOTENSION [None]
  - VOMITING [None]
